FAERS Safety Report 6322589-8 (Version None)
Quarter: 2009Q3

REPORT INFORMATION
  Report Type: 
  Country: None (occurrence: None)
  Receive Date: 20090824
  Receipt Date: 20090512
  Transmission Date: 20100115
  Serious: No
  Sender: FDA-Public Use
  Company Number: US-ABBOTT-09P-163-0560255-00

PATIENT
  Sex: Female

DRUGS (15)
  1. NIASPAN [Suspect]
     Indication: HIGH DENSITY LIPOPROTEIN DECREASED
     Dosage: NIGHTLY
     Dates: start: 20081001, end: 20081101
  2. NIASPAN [Suspect]
     Indication: LOW DENSITY LIPOPROTEIN INCREASED
     Dosage: NIGHTLY
  3. NIASPAN [Suspect]
     Indication: BLOOD CHOLESTEROL ABNORMAL
  4. NIASPAN [Suspect]
     Indication: BLOOD TRIGLYCERIDES ABNORMAL
     Dosage: NIGHTLY
     Dates: start: 20090101
  5. ASPIRIN [Suspect]
  6. ASPIRIN [Concomitant]
     Indication: DRUG USE FOR UNKNOWN INDICATION
     Route: 048
  7. ENTERIC ASPIRIN [Concomitant]
     Indication: FLUSHING
     Route: 048
     Dates: start: 20090101
  8. ENTERIC ASPIRIN [Concomitant]
     Indication: PROPHYLAXIS
  9. METFORMIN HCL [Concomitant]
     Indication: DIABETES MELLITUS
     Dosage: MORNING AND EVENING
     Route: 048
  10. ACTOS [Concomitant]
     Indication: DRUG USE FOR UNKNOWN INDICATION
     Route: 048
     Dates: end: 20081001
  11. FISH OIL [Concomitant]
     Indication: BLOOD CHOLESTEROL
     Route: 048
  12. FISH OIL [Concomitant]
     Indication: SKIN DISORDER
  13. FISH OIL [Concomitant]
     Indication: ARTHROPATHY
  14. CALCIUM W/VITAMIN D [Concomitant]
     Indication: MINERAL SUPPLEMENTATION
     Route: 048
  15. LISINOPRIL [Concomitant]
     Indication: HYPERTENSION
     Route: 048

REACTIONS (7)
  - FEELING HOT [None]
  - HEADACHE [None]
  - HUNGER [None]
  - MIDDLE INSOMNIA [None]
  - MYODESOPSIA [None]
  - PRURITUS [None]
  - WHEEZING [None]
